FAERS Safety Report 14971425 (Version 2)
Quarter: 2018Q3

REPORT INFORMATION
  Report Type: Spontaneous
  Country: US (occurrence: US)
  Receive Date: 20180604
  Receipt Date: 20180921
  Transmission Date: 20181010
  Serious: No
  Sender: FDA-Public Use
  Company Number: US-NEUROCRINE BIOSCIENCES INC.-2018NBI01591

PATIENT
  Sex: Female

DRUGS (3)
  1. CLONAZEPAM. [Concomitant]
     Active Substance: CLONAZEPAM
     Indication: TARDIVE DYSKINESIA
     Dosage: HALF TABLET IN MORNING AND 1 TABLET AT BEDTIME
     Route: 048
     Dates: start: 20170808
  2. INGREZZA [Suspect]
     Active Substance: VALBENAZINE
     Indication: TARDIVE DYSKINESIA
     Route: 048
     Dates: start: 201708
  3. INGREZZA [Suspect]
     Active Substance: VALBENAZINE
     Route: 048
     Dates: start: 20180524

REACTIONS (5)
  - Bradykinesia [Unknown]
  - Reduced facial expression [Unknown]
  - Movement disorder [Unknown]
  - Gait disturbance [Unknown]
  - Parkinsonism [Unknown]
